FAERS Safety Report 16121992 (Version 2)
Quarter: 2019Q2

REPORT INFORMATION
  Report Type: Spontaneous
  Country: US (occurrence: US)
  Receive Date: 20190327
  Receipt Date: 20190627
  Transmission Date: 20190711
  Serious: Yes (Hospitalization)
  Sender: FDA-Public Use
  Company Number: US-PFIZER INC-2019125223

PATIENT
  Age: 65 Year
  Sex: Female
  Weight: 52.15 kg

DRUGS (14)
  1. IMVEXXY [Suspect]
     Active Substance: ESTRADIOL
     Dosage: UNK
     Dates: start: 201807, end: 201901
  2. PREMARIN [Suspect]
     Active Substance: ESTROGENS, CONJUGATED
     Indication: URINARY TRACT INFECTION
  3. ESTRIOL [Suspect]
     Active Substance: ESTRIOL
     Indication: URINARY TRACT INFECTION
  4. PREMARIN [Suspect]
     Active Substance: ESTROGENS, CONJUGATED
     Indication: ATROPHIC VULVOVAGINITIS
     Dosage: UNK
     Dates: start: 2018, end: 201807
  5. VITAMIN B12 [Concomitant]
     Active Substance: CYANOCOBALAMIN
     Dosage: UNK
  6. VITAMIN C [Concomitant]
     Active Substance: ASCORBIC ACID
     Dosage: UNK
  7. VITAMIN D3 [Concomitant]
     Active Substance: CHOLECALCIFEROL
     Dosage: UNK
  8. ADVIL [IBUPROFEN] [Concomitant]
     Active Substance: IBUPROFEN
     Dosage: UNK, AS NEEDED
  9. PROBIOTICS [Concomitant]
     Active Substance: PROBIOTICS NOS
     Dosage: UNK
  10. IMVEXXY [Suspect]
     Active Substance: ESTRADIOL
     Dosage: 4 UG, 2X/WEEK
     Route: 067
     Dates: start: 201812, end: 20190203
  11. IMVEXXY [Suspect]
     Active Substance: ESTRADIOL
     Indication: ATROPHIC VULVOVAGINITIS
     Dosage: 10 UG, 2X/WEEK (BEFORE BED)
     Route: 067
     Dates: start: 2018, end: 2018
  12. IMVEXXY [Suspect]
     Active Substance: ESTRADIOL
     Indication: URINARY TRACT INFECTION
     Dosage: 10 UG, 2X/WEEK (BEFORE BED)
     Route: 067
     Dates: start: 2018, end: 2018
  13. ESTRIOL [Suspect]
     Active Substance: ESTRIOL
     Indication: ATROPHY
     Dosage: UNK
     Route: 067
     Dates: start: 20190418
  14. SUMATRIPTAN. [Concomitant]
     Active Substance: SUMATRIPTAN
     Dosage: UNK, AS NEEDED (RARELY)

REACTIONS (6)
  - Feeling abnormal [Recovered/Resolved]
  - Migraine [Recovered/Resolved]
  - Pain [Recovered/Resolved]
  - Middle insomnia [Unknown]
  - Headache [Recovered/Resolved]
  - Contraindicated product prescribed [Unknown]

NARRATIVE: CASE EVENT DATE: 201808
